FAERS Safety Report 11050546 (Version 1)
Quarter: 2015Q2

REPORT INFORMATION
  Report Type: Not Available
  Country: US (occurrence: US)
  Receive Date: 20150421
  Receipt Date: 20150421
  Transmission Date: 20150821
  Serious: Yes (Other)
  Sender: FDA-Public Use
  Company Number: US-LUPIN PHARMACEUTICALS INC.-2015-01037

PATIENT
  Sex: Male

DRUGS (1)
  1. RABEPRAZOLE SODIUM DELAYED-RELEASE 20MG TABLETS [Suspect]
     Active Substance: RABEPRAZOLE SODIUM
     Indication: PRODUCT USED FOR UNKNOWN INDICATION
     Route: 065

REACTIONS (2)
  - Condition aggravated [Unknown]
  - Coeliac disease [Unknown]
